FAERS Safety Report 23310034 (Version 1)
Quarter: 2023Q4

REPORT INFORMATION
  Report Type: Spontaneous
  Country: US (occurrence: None)
  Receive Date: 20231218
  Receipt Date: 20231218
  Transmission Date: 20240110
  Serious: Yes (Other)
  Sender: FDA-Public Use
  Company Number: None

PATIENT
  Age: 64 Year
  Sex: Male
  Weight: 108 kg

DRUGS (1)
  1. HYDROCODONE [Suspect]
     Active Substance: HYDROCODONE

REACTIONS (2)
  - Withdrawal syndrome [None]
  - Product availability issue [None]

NARRATIVE: CASE EVENT DATE: 20231215
